FAERS Safety Report 22089639 (Version 1)
Quarter: 2023Q1

REPORT INFORMATION
  Report Type: Report from Study
  Country: US (occurrence: None)
  Receive Date: 20230313
  Receipt Date: 20230313
  Transmission Date: 20230417
  Serious: Yes (Other)
  Sender: FDA-Public Use
  Company Number: 2023A058158

PATIENT
  Sex: Female
  Weight: 74.4 kg

DRUGS (1)
  1. KOMBIGLYZE XR [Suspect]
     Active Substance: METFORMIN HYDROCHLORIDE\SAXAGLIPTIN HYDROCHLORIDE
     Indication: Glucose tolerance impaired
     Dosage: 5/500 MG
     Route: 048

REACTIONS (5)
  - Deafness [Unknown]
  - Otorrhoea [Not Recovered/Not Resolved]
  - Ear discomfort [Unknown]
  - Sinus disorder [Unknown]
  - Product dose omission issue [Recovered/Resolved]
